APPROVED DRUG PRODUCT: CEFOTAXIME
Active Ingredient: CEFOTAXIME SODIUM
Strength: EQ 10GM BASE/VIAL
Dosage Form/Route: INJECTABLE;INJECTION
Application: A064201 | Product #001
Applicant: FRESENIUS KABI USA LLC
Approved: Mar 24, 2000 | RLD: No | RS: No | Type: DISCN